FAERS Safety Report 16061054 (Version 1)
Quarter: 2019Q1

REPORT INFORMATION
  Report Type: Spontaneous
  Country: US (occurrence: US)
  Receive Date: 20190312
  Receipt Date: 20190312
  Transmission Date: 20190418
  Serious: No
  Sender: FDA-Public Use
  Company Number: US-ROCHE-2118309

PATIENT
  Age: 74 Year
  Sex: Female
  Weight: 61.29 kg

DRUGS (3)
  1. AVASTIN [Suspect]
     Active Substance: BEVACIZUMAB
     Dosage: VARIES EVERY 8 TO 12 WEEKS
     Route: 031
  2. AVASTIN [Suspect]
     Active Substance: BEVACIZUMAB
     Indication: NEOVASCULAR AGE-RELATED MACULAR DEGENERATION
     Route: 031
     Dates: start: 201203
  3. AVASTIN [Suspect]
     Active Substance: BEVACIZUMAB
     Route: 031
     Dates: start: 20180424

REACTIONS (3)
  - Off label use [Unknown]
  - Vitreous floaters [Not Recovered/Not Resolved]
  - Intentional product use issue [Unknown]

NARRATIVE: CASE EVENT DATE: 201710
